APPROVED DRUG PRODUCT: TAYTULLA
Active Ingredient: ETHINYL ESTRADIOL; NORETHINDRONE ACETATE
Strength: 0.02MG;1MG
Dosage Form/Route: CAPSULE;ORAL
Application: N204426 | Product #001 | TE Code: AB
Applicant: ALLERGAN PHARMACEUTICALS INTERNATIONAL LTD
Approved: Apr 19, 2013 | RLD: Yes | RS: Yes | Type: RX